FAERS Safety Report 18234247 (Version 1)
Quarter: 2020Q3

REPORT INFORMATION
  Report Type: Spontaneous
  Country: US (occurrence: US)
  Receive Date: 20200904
  Receipt Date: 20200904
  Transmission Date: 20201103
  Serious: Yes (Death, Other)
  Sender: FDA-Public Use
  Company Number: US-B.I. PHARMACEUTICALS,INC./RIDGEFIELD-2020-BI-045012

PATIENT
  Age: 63 Year
  Sex: Female

DRUGS (2)
  1. SOTALOL. [Concomitant]
     Active Substance: SOTALOL
     Indication: ATRIAL FIBRILLATION
     Route: 065
  2. PRADAXA [Suspect]
     Active Substance: DABIGATRAN ETEXILATE MESYLATE
     Indication: ATRIAL FIBRILLATION

REACTIONS (7)
  - Disseminated intravascular coagulation [Fatal]
  - Myocardial infarction [Unknown]
  - Streptococcal bacteraemia [Fatal]
  - Post procedural haemorrhage [Unknown]
  - Shock haemorrhagic [Fatal]
  - Cardiogenic shock [Fatal]
  - Ischaemic stroke [Unknown]
